FAERS Safety Report 8401470-4 (Version None)
Quarter: 2012Q2

REPORT INFORMATION
  Report Type: 
  Country: None (occurrence: None)
  Receive Date: 20120601
  Receipt Date: 20120521
  Transmission Date: 20120825
  Serious: Yes (Hospitalization)
  Sender: FDA-Public Use
  Company Number: GB-NOVOPROD-352050

PATIENT
  Age: 75 Year
  Sex: Female

DRUGS (2)
  1. INSULATARD NPH HUMAN [Suspect]
     Indication: TYPE 2 DIABETES MELLITUS
  2. ANTIBIOTICS [Concomitant]
     Indication: PNEUMONIA

REACTIONS (4)
  - HYPOGLYCAEMIA [None]
  - CONDITION AGGRAVATED [None]
  - ELECTROCARDIOGRAM QT PROLONGED [None]
  - MYOCARDIAL ISCHAEMIA [None]
